FAERS Safety Report 24454827 (Version 2)
Quarter: 2024Q4

REPORT INFORMATION
  Report Type: Report from Study
  Country: MX (occurrence: MX)
  Receive Date: 20241017
  Receipt Date: 20241018
  Transmission Date: 20250115
  Serious: No
  Sender: ROCHE
  Company Number: MX-ROCHE-3471235

PATIENT
  Age: 20 Year
  Sex: Female

DRUGS (1)
  1. RITUXIMAB [Suspect]
     Active Substance: RITUXIMAB
     Indication: Multiple sclerosis
     Route: 041
     Dates: start: 20221123, end: 202306

REACTIONS (2)
  - Influenza [Recovering/Resolving]
  - Sinusitis [Recovering/Resolving]

NARRATIVE: CASE EVENT DATE: 20231125
